FAERS Safety Report 20709040 (Version 1)
Quarter: 2022Q2

REPORT INFORMATION
  Report Type: Spontaneous
  Country: CN (occurrence: CN)
  Receive Date: 20220414
  Receipt Date: 20220414
  Transmission Date: 20220721
  Serious: Yes (Other)
  Sender: FDA-Public Use
  Company Number: CN-009507513-2204CHN002690

PATIENT
  Age: 73 Year
  Sex: Female
  Weight: 58.9 kg

DRUGS (3)
  1. JANUMET [Suspect]
     Active Substance: METFORMIN HYDROCHLORIDE\SITAGLIPTIN PHOSPHATE
     Indication: Type 2 diabetes mellitus
     Dosage: 1 TABLET, QD
     Route: 048
     Dates: start: 20220214, end: 20220306
  2. INSULIN ASPART;INSULIN DEGLUDEC [Concomitant]
     Indication: Type 2 diabetes mellitus
     Dosage: UNK
  3. DAPAGLIFLOZIN [Concomitant]
     Active Substance: DAPAGLIFLOZIN
     Indication: Type 2 diabetes mellitus

REACTIONS (4)
  - Diabetes mellitus inadequate control [Unknown]
  - Gastrooesophageal reflux disease [Recovering/Resolving]
  - Abdominal discomfort [Recovering/Resolving]
  - Incorrect dose administered [Unknown]

NARRATIVE: CASE EVENT DATE: 20220214
